FAERS Safety Report 5570313-9 (Version None)
Quarter: 2007Q4

REPORT INFORMATION
  Report Type: 
  Country: None (occurrence: None)
  Receive Date: 20071219
  Receipt Date: 20071219
  Transmission Date: 20080405
  Serious: No
  Sender: FDA-Public Use
  Company Number: None

PATIENT
  Age: 62 Year
  Sex: Male

DRUGS (1)
  1. LINEZOLID [Suspect]
     Indication: OSTEOMYELITIS
     Dosage: 600MG BID PO
     Route: 048
     Dates: start: 20070628, end: 20070718

REACTIONS (5)
  - CONFUSIONAL STATE [None]
  - DIZZINESS [None]
  - DRY MOUTH [None]
  - NAUSEA [None]
  - VOMITING [None]
